FAERS Safety Report 20862744 (Version 1)
Quarter: 2022Q2

REPORT INFORMATION
  Report Type: Spontaneous
  Country: US (occurrence: None)
  Receive Date: 20220522
  Receipt Date: 20220522
  Transmission Date: 20220721
  Serious: Yes (Disabling)
  Sender: FDA-Public Use
  Company Number: None

PATIENT
  Age: 34 Year
  Sex: Female
  Weight: 94.5 kg

DRUGS (9)
  1. OLANZAPINE [Suspect]
     Active Substance: OLANZAPINE
     Indication: Bipolar disorder
     Dosage: OTHER QUANTITY : 30 TABLET(S);?FREQUENCY : AT BEDTIME;?
  2. OLANZAPINE [Suspect]
     Active Substance: OLANZAPINE
     Indication: Schizophrenia
  3. BUSPIRONE [Suspect]
     Active Substance: BUSPIRONE HYDROCHLORIDE
     Indication: Anxiety
     Dosage: OTHER QUANTITY : 1 TABLET(S);?FREQUENCY : EVERY 6 HOURS;?
  4. OLANZAPINE [Concomitant]
     Active Substance: OLANZAPINE
  5. BUSPIRONE [Concomitant]
     Active Substance: BUSPIRONE HYDROCHLORIDE
  6. INVEGA SUSTENNA [Concomitant]
     Active Substance: PALIPERIDONE PALMITATE
  7. ACYCLOVIR [Concomitant]
     Active Substance: ACYCLOVIR
  8. DICLOFENAC SODIUM [Concomitant]
     Active Substance: DICLOFENAC SODIUM
  9. Women^s once a day multivitamin [Concomitant]

REACTIONS (30)
  - Headache [None]
  - Asthenia [None]
  - Myalgia [None]
  - Bone pain [None]
  - Burning sensation [None]
  - Burning sensation [None]
  - Hypoaesthesia [None]
  - Hypoaesthesia oral [None]
  - Musculoskeletal stiffness [None]
  - Joint swelling [None]
  - Arthralgia [None]
  - Pruritus [None]
  - Hallucinations, mixed [None]
  - Muscle twitching [None]
  - Dyspnoea [None]
  - Fatigue [None]
  - Nasal congestion [None]
  - Diplopia [None]
  - Vision blurred [None]
  - Grip strength decreased [None]
  - Joint lock [None]
  - Malaise [None]
  - Nausea [None]
  - Anxiety [None]
  - Periorbital swelling [None]
  - Alopecia [None]
  - Thirst [None]
  - Blood cholesterol increased [None]
  - Nail ridging [None]
  - Anxiety [None]

NARRATIVE: CASE EVENT DATE: 20200202
